FAERS Safety Report 6958930-2 (Version None)
Quarter: 2010Q3

REPORT INFORMATION
  Report Type: 
  Country: None (occurrence: None)
  Receive Date: 20100831
  Receipt Date: 20100721
  Transmission Date: 20110219
  Serious: Yes (Life-Threatening, Other)
  Sender: FDA-Public Use
  Company Number: US-BAYER-201021613NA

PATIENT
  Age: 16 Year
  Sex: Female
  Weight: 103 kg

DRUGS (13)
  1. YAZ [Suspect]
     Indication: PRODUCT USED FOR UNKNOWN INDICATION
     Route: 048
  2. YASMIN [Suspect]
     Indication: PRODUCT USED FOR UNKNOWN INDICATION
     Route: 048
     Dates: start: 20080101, end: 20090901
  3. OCELLA [Suspect]
     Indication: PREMENSTRUAL SYNDROME
     Dates: start: 20090310, end: 20100201
  4. TOPAMAX [Concomitant]
     Dates: start: 20040101, end: 20050101
  5. NAPROXEN [Concomitant]
     Dates: start: 20040101, end: 20050101
  6. TYLENOL W/ CODEINE NO. 3 [Concomitant]
     Dates: start: 20040101, end: 20050101
  7. PHENERGAN [Concomitant]
     Dates: start: 20040101, end: 20050101
  8. ORTHO-NOVUM [Concomitant]
  9. RANITIDINE [Concomitant]
  10. DARVOCET [Concomitant]
  11. ZANTAC [Concomitant]
  12. REGLAN [Concomitant]
  13. HYDROCODONE [Concomitant]

REACTIONS (12)
  - ABDOMINAL PAIN [None]
  - APPENDICITIS PERFORATED [None]
  - CHOLECYSTITIS CHRONIC [None]
  - DEEP VEIN THROMBOSIS [None]
  - DIARRHOEA [None]
  - GALLBLADDER CHOLESTEROLOSIS [None]
  - GALLBLADDER NON-FUNCTIONING [None]
  - NAUSEA [None]
  - PAIN [None]
  - PULMONARY EMBOLISM [None]
  - PYREXIA [None]
  - VOMITING [None]
